FAERS Safety Report 14447786 (Version 6)
Quarter: 2020Q3

REPORT INFORMATION
  Report Type: Report from Study
  Country: TR (occurrence: TR)
  Receive Date: 20180126
  Receipt Date: 20190924
  Transmission Date: 20201105
  Serious: Yes (Death, Life-Threatening, Other)
  Sender: FDA-Public Use
  Company Number: TR-JNJFOC-20180117290

PATIENT
  Age: 10 Year
  Sex: Male
  Weight: 34 kg

DRUGS (45)
  1. PREDNISOLONE. [Suspect]
     Active Substance: PREDNISOLONE
     Indication: LYMPHOMA
     Route: 037
     Dates: start: 20180113
  2. SODIUM BICARBONATE. [Concomitant]
     Active Substance: SODIUM BICARBONATE
     Indication: ACIDOSIS
     Dosage: 100
     Route: 042
     Dates: start: 20180108
  3. OCTAGAM IMMUNE GLOBULIN (HUMAN) [Concomitant]
     Active Substance: HUMAN IMMUNOGLOBULIN G
     Route: 042
  4. AMLODIPINE [Concomitant]
     Active Substance: AMLODIPINE BESYLATE
     Indication: HYPERTENSION
     Route: 065
  5. DEXAMETHASONE. [Suspect]
     Active Substance: DEXAMETHASONE
     Indication: LYMPHOMA
     Dosage: PER PROTOCOL
     Route: 065
     Dates: start: 20180117
  6. PROGAS [Concomitant]
     Indication: GASTROINTESTINAL DISORDER THERAPY
     Dosage: 2500
     Route: 048
     Dates: start: 20180109
  7. POTASSIUM [Concomitant]
     Active Substance: POTASSIUM
     Indication: HYPOKALAEMIA
     Route: 048
     Dates: start: 20180111
  8. DIDERAL [Concomitant]
     Active Substance: PROPRANOLOL HYDROCHLORIDE
     Indication: HYPERTENSION
     Route: 048
  9. URSACTIVE [Concomitant]
     Active Substance: URSODIOL
     Indication: BLOOD BILIRUBIN INCREASED
     Route: 048
  10. LEUCOSTIM [Concomitant]
     Active Substance: FILGRASTIM
     Indication: NEUTROPENIA
     Route: 058
  11. NOREPINEPHRINE. [Concomitant]
     Active Substance: NOREPINEPHRINE
     Indication: HYPOTENSION
     Route: 042
  12. RITUXIMAB. [Suspect]
     Active Substance: RITUXIMAB
     Indication: LYMPHOMA
     Route: 042
     Dates: start: 20180113
  13. CARBOPLATIN. [Suspect]
     Active Substance: CARBOPLATIN
     Indication: LYMPHOMA
     Route: 042
     Dates: start: 20180115
  14. VINCRISTINE [Suspect]
     Active Substance: VINCRISTINE
     Indication: LYMPHOMA
     Route: 042
     Dates: start: 20180115
  15. FUROSAN [Concomitant]
     Indication: DIURETIC THERAPY
     Route: 042
     Dates: start: 20180108
  16. DEVIT [Concomitant]
     Indication: HYPOCALCAEMIA
     Dosage: 2500
     Route: 048
     Dates: start: 20180108
  17. SODIUM BICARBONATE. [Concomitant]
     Active Substance: SODIUM BICARBONATE
     Indication: ORAL PAIN
     Route: 048
  18. IFOSFAMIDE. [Suspect]
     Active Substance: IFOSFAMIDE
     Indication: LYMPHOMA
     Route: 042
     Dates: start: 20180115
  19. PARTEMOL [Concomitant]
     Indication: PYREXIA
     Route: 042
     Dates: start: 20180108
  20. DEXTROSE. [Concomitant]
     Active Substance: DEXTROSE
     Dosage: 2500
     Route: 042
     Dates: start: 20180108
  21. DEVIT [Concomitant]
     Dosage: 2500
     Route: 048
     Dates: start: 20180110
  22. DUPHALAC [Concomitant]
     Active Substance: LACTULOSE
     Indication: CONSTIPATION
     Dosage: 2500
     Route: 048
     Dates: start: 20180108
  23. TRANSAMINE [Concomitant]
     Indication: HAEMORRHAGE PROPHYLAXIS
     Route: 042
  24. FUNGOSTATIN [Concomitant]
     Active Substance: NYSTATIN
     Route: 065
  25. CALCIOSEL [Concomitant]
     Indication: HYPOCALCAEMIA
     Route: 065
  26. DOPAMINE HYDROCHLORIDE. [Concomitant]
     Active Substance: DOPAMINE HYDROCHLORIDE
     Indication: HYPERTENSION
     Route: 042
  27. LANSOR [Concomitant]
     Active Substance: LANSOPRAZOLE
     Indication: PROPHYLAXIS
     Route: 048
     Dates: start: 20180108
  28. ONDANSETRON [Concomitant]
     Active Substance: ONDANSETRON
     Indication: VOMITING
     Route: 042
     Dates: start: 20180108
  29. NOVALGIN [Concomitant]
     Indication: PYREXIA
     Dosage: 2500
     Route: 048
     Dates: start: 20180111
  30. LASIX [Concomitant]
     Active Substance: FUROSEMIDE
     Indication: PROPHYLAXIS
     Route: 048
  31. MAGNESIUM SULFATE. [Concomitant]
     Active Substance: MAGNESIUM SULFATE
     Route: 042
  32. BALABAN [Concomitant]
     Indication: PENILE OEDEMA
     Route: 061
  33. TALINAT [Concomitant]
     Active Substance: FENTANYL CITRATE
     Indication: HEADACHE
     Route: 042
  34. METHOTREXATE. [Suspect]
     Active Substance: METHOTREXATE
     Indication: LYMPHOMA
     Route: 037
     Dates: start: 20180113
  35. ADRENALINE [Concomitant]
     Active Substance: EPINEPHRINE
     Indication: HAEMORRHAGE PROPHYLAXIS
     Route: 042
  36. LASIX [Concomitant]
     Active Substance: FUROSEMIDE
     Indication: PROPHYLAXIS
     Route: 065
     Dates: start: 20180124, end: 20180124
  37. IDARUBICIN [Suspect]
     Active Substance: IDARUBICIN
     Indication: LYMPHOMA
     Route: 042
     Dates: start: 20180115
  38. MUCINAC [Concomitant]
     Indication: MINERAL SUPPLEMENTATION
     Route: 042
     Dates: start: 20180109
  39. MAGNESIUM SULFATE. [Concomitant]
     Active Substance: MAGNESIUM SULFATE
     Indication: HYPOMAGNESAEMIA
     Route: 042
  40. KONAKION [Concomitant]
     Active Substance: PHYTONADIONE
     Indication: HAEMORRHAGE PROPHYLAXIS
     Route: 030
  41. URIKOLIZ [Concomitant]
     Active Substance: ALLOPURINOL
     Indication: HYPERURICAEMIA
     Route: 065
  42. CARDENOR [Concomitant]
     Indication: HYPOTENSION
     Route: 042
  43. IBRUTINIB [Suspect]
     Active Substance: IBRUTINIB
     Indication: LYMPHOMA
     Route: 048
     Dates: start: 20180115, end: 20180120
  44. CYTARABINE. [Suspect]
     Active Substance: CYTARABINE
     Indication: LYMPHOMA
     Route: 037
     Dates: start: 20180113
  45. ONPYRON [Concomitant]
     Indication: PYREXIA
     Route: 042

REACTIONS (3)
  - Sepsis [Fatal]
  - Haemorrhage intracranial [Not Recovered/Not Resolved]
  - Pneumonia [Not Recovered/Not Resolved]

NARRATIVE: CASE EVENT DATE: 20180115
